FAERS Safety Report 8294143-2 (Version None)
Quarter: 2012Q2

REPORT INFORMATION
  Report Type: 
  Country: None (occurrence: None)
  Receive Date: 20120418
  Receipt Date: 20120411
  Transmission Date: 20120825
  Serious: Yes (Death, Other)
  Sender: FDA-Public Use
  Company Number: PHEH2012US007936

PATIENT
  Sex: Male

DRUGS (1)
  1. MYFORTIC [Suspect]
     Indication: PROPHYLAXIS AGAINST TRANSPLANT REJECTION
     Dosage: 180 MG, TID
     Route: 048
     Dates: end: 20120310

REACTIONS (4)
  - CYSTIC FIBROSIS [None]
  - ORAL ADMINISTRATION COMPLICATION [None]
  - RESPIRATORY FAILURE [None]
  - LUNG TRANSPLANT REJECTION [None]
